FAERS Safety Report 8144963-X (Version None)
Quarter: 2012Q1

REPORT INFORMATION
  Report Type: 
  Country: None (occurrence: None)
  Receive Date: 20120217
  Receipt Date: 20120208
  Transmission Date: 20120608
  Serious: Yes (Hospitalization)
  Sender: FDA-Public Use
  Company Number: US-MERCK-1202USA01565

PATIENT
  Sex: Female

DRUGS (5)
  1. COZAAR [Suspect]
     Indication: BLOOD PRESSURE
     Route: 065
     Dates: start: 20110101
  2. METOPROLOL [Concomitant]
     Route: 065
  3. LOSARTAN POTASSIUM [Suspect]
     Indication: BLOOD PRESSURE
     Route: 065
  4. QUINIDINE [Concomitant]
     Route: 065
  5. ALPRAZOLAM [Concomitant]
     Route: 065

REACTIONS (3)
  - DRUG INEFFECTIVE [None]
  - ELECTROCARDIOGRAM ABNORMAL [None]
  - BLOOD PRESSURE INADEQUATELY CONTROLLED [None]
